FAERS Safety Report 11400902 (Version 1)
Quarter: 2015Q3

REPORT INFORMATION
  Report Type: Report from Study
  Country: US (occurrence: US)
  Receive Date: 20150820
  Receipt Date: 20150820
  Transmission Date: 20151125
  Serious: Yes (Hospitalization)
  Sender: FDA-Public Use
  Company Number: US-AMGEN-USACT2015083808

PATIENT
  Age: 53 Year
  Sex: Male
  Weight: 141 kg

DRUGS (1)
  1. CARFILZOMIB [Suspect]
     Active Substance: CARFILZOMIB
     Indication: PROSTATE CANCER METASTATIC
     Dosage: 123 MG, 2 TIMES/WK
     Route: 042
     Dates: start: 20140917

REACTIONS (10)
  - Pain [Unknown]
  - Decreased appetite [Unknown]
  - Pyrexia [Unknown]
  - Weight decreased [Unknown]
  - Dyspnoea [Unknown]
  - Chills [Unknown]
  - Fatigue [Unknown]
  - Abscess drainage [Unknown]
  - Subcutaneous abscess [Unknown]
  - Abscess bacterial [Unknown]

NARRATIVE: CASE EVENT DATE: 20141105
